FAERS Safety Report 6732502-7 (Version None)
Quarter: 2010Q2

REPORT INFORMATION
  Report Type: 
  Country: None (occurrence: None)
  Receive Date: 20100519
  Receipt Date: 20100512
  Transmission Date: 20101027
  Serious: Yes (Other)
  Sender: FDA-Public Use
  Company Number: ES-ELI_LILLY_AND_COMPANY-ES201005003954

PATIENT
  Sex: Male

DRUGS (5)
  1. CIALIS [Suspect]
     Dosage: HALF OF 20MG TABLET, UNKNOWN
     Route: 065
  2. CIALIS [Suspect]
     Dosage: SPLIT 20MG TABLET INTO 4 PARTS, UNKNOWN
     Route: 065
  3. ARTEDIL [Concomitant]
     Dosage: 20 MG, UNKNOWN
     Route: 065
  4. MICARDIS [Concomitant]
     Dosage: 80 MG, UNKNOWN
     Route: 065
  5. ALDACTACINE [Concomitant]
     Dosage: UNK, UNKNOWN
     Route: 065

REACTIONS (4)
  - INTRAOCULAR PRESSURE INCREASED [None]
  - PHOTOPSIA [None]
  - SYNCOPE [None]
  - TINNITUS [None]
